FAERS Safety Report 4549332-7 (Version None)
Quarter: 2005Q1

REPORT INFORMATION
  Report Type: 
  Country: None (occurrence: None)
  Receive Date: 20050106
  Receipt Date: 20041222
  Transmission Date: 20050727
  Serious: Yes (Other)
  Sender: FDA-Public Use
  Company Number: ZA-2004-036330

PATIENT
  Age: 51 Year
  Sex: Female

DRUGS (2)
  1. MIRENA [Suspect]
     Dosage: 20 UG, CONT, INTRA-UTERINE
     Route: 015
     Dates: start: 20011001
  2. MIRENA [Suspect]
     Dosage: 20 UG, CONT, INTRA-UTERINE
     Route: 015
     Dates: start: 20041020

REACTIONS (2)
  - MEDICATION ERROR [None]
  - UTERINE CANCER [None]
